FAERS Safety Report 11336223 (Version 1)
Quarter: 2015Q3

REPORT INFORMATION
  Report Type: Spontaneous
  Country: KR (occurrence: KR)
  Receive Date: 20150804
  Receipt Date: 20150804
  Transmission Date: 20151125
  Serious: Yes (Other)
  Sender: FDA-Public Use
  Company Number: KR-PFIZER INC-2015258392

PATIENT
  Sex: Female

DRUGS (1)
  1. SAYANA [Suspect]
     Active Substance: MEDROXYPROGESTERONE
     Indication: ENDOMETRIOSIS

REACTIONS (4)
  - Disease progression [Unknown]
  - Uterine leiomyoma [Unknown]
  - Drug ineffective [Not Recovered/Not Resolved]
  - Metrorrhagia [Not Recovered/Not Resolved]
